FAERS Safety Report 10016723 (Version 2)
Quarter: 2014Q1

REPORT INFORMATION
  Report Type: Report from Study
  Country: AR (occurrence: AR)
  Receive Date: 20140318
  Receipt Date: 20140318
  Transmission Date: 20141002
  Serious: Yes (Disabling)
  Sender: FDA-Public Use
  Company Number: PHHO2012AR008629

PATIENT
  Sex: 0

DRUGS (4)
  1. ALISKIREN [Suspect]
     Indication: CARDIOVASCULAR DISORDER
     Dosage: 300 MG, UNK
     Route: 048
     Dates: start: 20110714, end: 20120605
  2. ESIDREX [Suspect]
     Indication: CARDIOVASCULAR DISORDER
     Dosage: 25 MG, UNK
     Dates: end: 20120605
  3. CARVEDILOL [Concomitant]
  4. AMLODIPINE [Concomitant]
     Dosage: 10 MG, UNK

REACTIONS (1)
  - Renal failure [Recovered/Resolved]
